FAERS Safety Report 15271333 (Version 1)
Quarter: 2018Q3

REPORT INFORMATION
  Report Type: Spontaneous
  Country: US (occurrence: US)
  Receive Date: 20180813
  Receipt Date: 20180813
  Transmission Date: 20181010
  Serious: No
  Sender: FDA-Public Use
  Company Number: US-DEPOMED, INC.-US-2017DEP002478

PATIENT

DRUGS (2)
  1. ZIPSOR [Suspect]
     Active Substance: DICLOFENAC POTASSIUM
     Dosage: 50 MG, BID
     Dates: start: 2017, end: 20171224
  2. ZIPSOR [Suspect]
     Active Substance: DICLOFENAC POTASSIUM
     Indication: PAIN
     Dosage: 25 MG, BID
     Dates: start: 2017, end: 2017

REACTIONS (3)
  - Abdominal discomfort [Recovered/Resolved]
  - Insomnia [Recovered/Resolved]
  - Drug ineffective [Recovered/Resolved]

NARRATIVE: CASE EVENT DATE: 2017
